FAERS Safety Report 26092077 (Version 1)
Quarter: 2025Q4

REPORT INFORMATION
  Report Type: Spontaneous
  Country: US (occurrence: None)
  Receive Date: 20251126
  Receipt Date: 20251126
  Transmission Date: 20260117
  Serious: No
  Sender: AMERICAN REGENT
  Company Number: US-AMERICAN REGENT INC-2025002926

PATIENT
  Sex: Female

DRUGS (2)
  1. VENOFER [Suspect]
     Active Substance: IRON SUCROSE
     Indication: Iron deficiency anaemia
     Dosage: UNK, SINGLE
  2. VENOFER [Suspect]
     Active Substance: IRON SUCROSE
     Dosage: UNK, SINGLE

REACTIONS (2)
  - Feeling abnormal [Unknown]
  - Dizziness [Unknown]
